FAERS Safety Report 15833400 (Version 1)
Quarter: 2018Q4

REPORT INFORMATION
  Report Type: Spontaneous
  Country: US (occurrence: US)
  Receive Date: 20181221
  Receipt Date: 20181221
  Transmission Date: 20190205
  Serious: Yes (Hospitalization)
  Sender: FDA-Public Use
  Company Number: None

PATIENT
  Age: 64 Year

DRUGS (4)
  1. LUMIGAN [Concomitant]
     Active Substance: BIMATOPROST
  2. BOSULIF [Suspect]
     Active Substance: BOSUTINIB MONOHYDRATE
     Indication: CHRONIC MYELOID LEUKAEMIA
     Route: 048
     Dates: start: 20180720
  3. ZYRTEC [Concomitant]
     Active Substance: CETIRIZINE HYDROCHLORIDE
  4. LUNESTA [Concomitant]
     Active Substance: ESZOPICLONE

REACTIONS (2)
  - Aortic valve repair [None]
  - Therapy cessation [None]

NARRATIVE: CASE EVENT DATE: 20181209
